FAERS Safety Report 16892095 (Version 3)
Quarter: 2019Q4

REPORT INFORMATION
  Report Type: Other
  Country: US (occurrence: US)
  Receive Date: 20191007
  Receipt Date: 20191216
  Transmission Date: 20200122
  Serious: Yes (Death, Congenital Anomaly, Other)
  Sender: FDA-Public Use
  Company Number: US-AMAG PHARMACEUTICALS, INC.-AMAG201905033

PATIENT
  Age: 0 Year

DRUGS (1)
  1. MAKENA [Suspect]
     Active Substance: HYDROXYPROGESTERONE CAPROATE
     Indication: FOETAL EXPOSURE DURING PREGNANCY
     Route: 064
     Dates: start: 20190905, end: 20190912

REACTIONS (3)
  - Stillbirth [Fatal]
  - Foetal cystic hygroma [Not Recovered/Not Resolved]
  - Hydrops foetalis [Not Recovered/Not Resolved]

NARRATIVE: CASE EVENT DATE: 20190916
